FAERS Safety Report 14704475 (Version 1)
Quarter: 2018Q2

REPORT INFORMATION
  Report Type: Spontaneous
  Country: US (occurrence: US)
  Receive Date: 20180402
  Receipt Date: 20180402
  Transmission Date: 20180711
  Serious: No
  Sender: FDA-Public Use
  Company Number: US-GLAXOSMITHKLINE-US2018051772

PATIENT
  Sex: Female

DRUGS (2)
  1. AZELASTINE NASAL SPRAY [Suspect]
     Active Substance: AZELASTINE
     Indication: HYPERSENSITIVITY
     Dosage: UNK
  2. FLONASE [Suspect]
     Active Substance: FLUTICASONE PROPIONATE
     Indication: MULTIPLE ALLERGIES
     Dosage: UNK

REACTIONS (2)
  - Adverse event [Unknown]
  - Unevaluable event [None]
